FAERS Safety Report 10347100 (Version 2)
Quarter: 2014Q3

REPORT INFORMATION
  Report Type: Spontaneous
  Country: FR (occurrence: FR)
  Receive Date: 20140729
  Receipt Date: 20140804
  Transmission Date: 20150326
  Serious: Yes (Hospitalization)
  Sender: FDA-Public Use
  Company Number: PHHY2014FR091196

PATIENT
  Age: 88 Year
  Sex: Male

DRUGS (13)
  1. SERESTA [Concomitant]
     Active Substance: OXAZEPAM
     Dosage: UNK UKN, UNK
  2. TRANSIPEG                          /01618701/ [Concomitant]
     Dosage: UNK UKN, UNK
  3. TAHOR [Suspect]
     Active Substance: ATORVASTATIN CALCIUM
     Indication: MYOCARDIAL INFARCTION
     Dosage: 10 MG, QD
     Route: 048
     Dates: end: 20140603
  4. DIFFU K [Suspect]
     Active Substance: POTASSIUM CHLORIDE
     Indication: HYPOKALAEMIA
     Dosage: 3 DF, IN ONE HOUR
     Route: 048
     Dates: start: 20140530, end: 20140602
  5. SEROPLEX [Suspect]
     Active Substance: ESCITALOPRAM OXALATE
     Indication: DEPRESSED MOOD
     Dosage: 10 MG, QD
     Route: 048
     Dates: end: 20140602
  6. LANSOYL [Concomitant]
     Active Substance: MINERAL OIL
     Dosage: UNK UKN, UNK
  7. TAREG [Suspect]
     Active Substance: VALSARTAN
     Indication: HYPERTENSION
     Dosage: 40 MG, QD
     Route: 048
     Dates: end: 20140604
  8. DOLIPRANE [Suspect]
     Active Substance: ACETAMINOPHEN
     Indication: PAIN
     Dosage: UNK UKN, UNK
     Route: 048
     Dates: end: 20140530
  9. PREVISCAN [Suspect]
     Active Substance: FLUINDIONE
     Indication: ATRIAL FIBRILLATION
     Dosage: 20 MG, (0.5 DF QD)
     Route: 048
     Dates: end: 20140601
  10. CORDARONE [Suspect]
     Active Substance: AMIODARONE HYDROCHLORIDE
     Indication: ATRIAL FIBRILLATION
     Dosage: 200 MG, (5 DF IN 7 DAYS)
     Route: 048
     Dates: end: 20140602
  11. LASILIX [Suspect]
     Active Substance: FUROSEMIDE
     Indication: CARDIAC FAILURE
     Dosage: 60 MG, TID
     Route: 048
     Dates: start: 20140529, end: 20140604
  12. IMOVANE [Suspect]
     Active Substance: ZOPICLONE
     Indication: INSOMNIA
     Dosage: 7.5 MG, QD
     Dates: end: 20140531
  13. VOLTARENE//DICLOFENAC SODIUM [Concomitant]
     Dosage: UNK UKN, UNK

REACTIONS (2)
  - Hepatitis [Recovering/Resolving]
  - International normalised ratio increased [Recovered/Resolved]

NARRATIVE: CASE EVENT DATE: 20140602
